FAERS Safety Report 7320479-5 (Version None)
Quarter: 2011Q1

REPORT INFORMATION
  Report Type: 
  Country: None (occurrence: None)
  Receive Date: 20110228
  Receipt Date: 20110221
  Transmission Date: 20110831
  Serious: Yes (Other)
  Sender: FDA-Public Use
  Company Number: B0702088A

PATIENT
  Sex: Female

DRUGS (1)
  1. RELENZA [Suspect]
     Route: 048
     Dates: start: 20110215, end: 20110220

REACTIONS (2)
  - INCORRECT ROUTE OF DRUG ADMINISTRATION [None]
  - APHASIA [None]
